FAERS Safety Report 8393550-7 (Version None)
Quarter: 2012Q2

REPORT INFORMATION
  Report Type: 
  Country: None (occurrence: None)
  Receive Date: 20120529
  Receipt Date: 20120518
  Transmission Date: 20120825
  Serious: Yes (Other)
  Sender: FDA-Public Use
  Company Number: TR-AMGEN-TURSP2012032314

PATIENT
  Age: 61 Year
  Sex: Male

DRUGS (2)
  1. ENBREL [Suspect]
     Indication: ANKYLOSING SPONDYLITIS
     Dosage: 50 MG, WEEKLY
     Route: 058
     Dates: start: 20110601, end: 20120301
  2. ISONIAZID [Concomitant]
     Dosage: UNK
     Route: 048
     Dates: start: 20110501, end: 20120301

REACTIONS (5)
  - CHEST X-RAY ABNORMAL [None]
  - HEPATIC ENZYME INCREASED [None]
  - RENAL DISORDER [None]
  - UVEITIS [None]
  - CARDIAC VALVE DISEASE [None]
